FAERS Safety Report 6495025-9 (Version None)
Quarter: 2009Q4

REPORT INFORMATION
  Report Type: 
  Country: None (occurrence: None)
  Receive Date: 20091214
  Receipt Date: 20090422
  Transmission Date: 20100525
  Serious: No
  Sender: FDA-Public Use
  Company Number: US-BRISTOL-MYERS SQUIBB COMPANY-14596894

PATIENT
  Age: 16 Year
  Sex: Male
  Weight: 61 kg

DRUGS (3)
  1. ABILIFY [Suspect]
     Dosage: INITIATED APPROX THREE YEARS AGO.DOSE WAS REDUCED AND DISCONTINUED.
     Dates: end: 20081001
  2. CELEXA [Concomitant]
  3. REMERON [Concomitant]

REACTIONS (1)
  - OCULOGYRIC CRISIS [None]
